FAERS Safety Report 25676590 (Version 1)
Quarter: 2025Q3

REPORT INFORMATION
  Report Type: Spontaneous
  Country: US (occurrence: US)
  Receive Date: 20250813
  Receipt Date: 20250813
  Transmission Date: 20251020
  Serious: Yes (Death, Life-Threatening, Other)
  Sender: NOVO NORDISK
  Company Number: US-NOVOPROD-1495917

PATIENT
  Age: 80 Year

DRUGS (1)
  1. OZEMPIC [Suspect]
     Active Substance: SEMAGLUTIDE
     Indication: Type 2 diabetes mellitus
     Dates: start: 202107, end: 202304

REACTIONS (6)
  - Death [Fatal]
  - Dehydration [Not Recovered/Not Resolved]
  - Intestinal obstruction [Not Recovered/Not Resolved]
  - Ileus [Not Recovered/Not Resolved]
  - Malnutrition [Not Recovered/Not Resolved]
  - Emotional distress [Not Recovered/Not Resolved]
